FAERS Safety Report 8340513-3 (Version None)
Quarter: 2012Q2

REPORT INFORMATION
  Report Type: 
  Country: None (occurrence: None)
  Receive Date: 20120507
  Receipt Date: 20090910
  Transmission Date: 20120825
  Serious: Yes (Life-Threatening, Hospitalization)
  Sender: FDA-Public Use
  Company Number: US-TEVA-2009009331

PATIENT
  Sex: Male
  Weight: 66.284 kg

DRUGS (1)
  1. TREANDA [Suspect]
     Indication: CHRONIC LYMPHOCYTIC LEUKAEMIA
     Route: 042
     Dates: start: 20081021, end: 20090330

REACTIONS (2)
  - BONE MARROW FAILURE [None]
  - PNEUMONIA [None]
